FAERS Safety Report 25908365 (Version 1)
Quarter: 2025Q4

REPORT INFORMATION
  Report Type: Spontaneous
  Country: US (occurrence: US)
  Receive Date: 20251010
  Receipt Date: 20251010
  Transmission Date: 20260118
  Serious: No
  Sender: SPROUT PHARMACEUTICALS
  Company Number: US-Sprout Pharmaceuticals, Inc.-2024SP000250

PATIENT

DRUGS (1)
  1. ADDYI [Suspect]
     Active Substance: FLIBANSERIN
     Indication: Drug ineffective
     Dosage: RX # 9341717, 100 MILLIGRAM
     Route: 048

REACTIONS (1)
  - Drug ineffective [Recovered/Resolved]
